FAERS Safety Report 21260056 (Version 1)
Quarter: 2022Q3

REPORT INFORMATION
  Report Type: Spontaneous
  Country: US (occurrence: None)
  Receive Date: 20220825
  Receipt Date: 20220825
  Transmission Date: 20221027
  Serious: Yes (Other)
  Sender: FDA-Public Use
  Company Number: None

PATIENT
  Age: 54 Year
  Sex: Male
  Weight: 75 kg

DRUGS (1)
  1. PROTAMINE [Suspect]
     Active Substance: PROTAMINE
     Indication: Coronary artery bypass
     Dosage: OTHER FREQUENCY : ONCE;?
     Route: 042
     Dates: start: 20220726, end: 20220726

REACTIONS (1)
  - Resuscitation [None]

NARRATIVE: CASE EVENT DATE: 20220726
